FAERS Safety Report 4954691-7 (Version None)
Quarter: 2006Q1

REPORT INFORMATION
  Report Type: 
  Country: None (occurrence: None)
  Receive Date: 20060327
  Receipt Date: 20060317
  Transmission Date: 20060701
  Serious: Yes (Hospitalization)
  Sender: FDA-Public Use
  Company Number: US-JNJFOC-20060202626

PATIENT
  Sex: Male
  Weight: 36.29 kg

DRUGS (7)
  1. MOTRIN [Suspect]
     Indication: DRUG USE FOR UNKNOWN INDICATION
  2. CHILDREN'S BENADRYL-D ALLERGY + SINUS [Suspect]
     Route: 048
  3. CHILDREN'S BENADRYL-D ALLERGY + SINUS [Suspect]
     Indication: SNEEZING
     Route: 048
  4. CHILDREN'S BENADRYL-D ALLERGY + SINUS [Suspect]
     Indication: SINUS CONGESTION
     Route: 048
  5. CHILDREN'S BENADRYL-D ALLERGY + SINUS [Suspect]
     Dosage: ^BY THE BOTTLE^
     Route: 048
  6. CHILDRENS VITAMINS [Concomitant]
  7. ACCUHIST LA [Concomitant]
     Indication: UPPER RESPIRATORY TRACT CONGESTION

REACTIONS (6)
  - ABASIA [None]
  - DRUG TOXICITY [None]
  - HALLUCINATION, VISUAL [None]
  - LOGORRHOEA [None]
  - MYDRIASIS [None]
  - PYREXIA [None]
